FAERS Safety Report 16503546 (Version 2)
Quarter: 2019Q3

REPORT INFORMATION
  Report Type: Spontaneous
  Country: US (occurrence: US)
  Receive Date: 20190701
  Receipt Date: 20190809
  Transmission Date: 20191004
  Serious: Yes (Other)
  Sender: FDA-Public Use
  Company Number: US-ASTRAZENECA-2019SE94449

PATIENT
  Sex: Female

DRUGS (20)
  1. PRILOSEC [Suspect]
     Active Substance: OMEPRAZOLE MAGNESIUM
     Dosage: GENERIC
     Route: 065
  2. PREVACID [Suspect]
     Active Substance: LANSOPRAZOLE
     Dosage: GENERIC
     Route: 048
  3. PREVACID [Suspect]
     Active Substance: LANSOPRAZOLE
     Route: 048
  4. ESTRADIOL. [Concomitant]
     Active Substance: ESTRADIOL
     Dates: start: 2006, end: 2009
  5. TEMAZEPAM. [Concomitant]
     Active Substance: TEMAZEPAM
     Dates: start: 2000, end: 2004
  6. PROTONIX [Suspect]
     Active Substance: PANTOPRAZOLE SODIUM
     Dosage: GENERIC15.0MG UNKNOWN
     Route: 048
     Dates: start: 20060630
  7. INDERAL [Concomitant]
     Active Substance: PROPRANOLOL HYDROCHLORIDE
     Dates: start: 2006, end: 2008
  8. PERCOCET [Concomitant]
     Active Substance: ACETAMINOPHEN\OXYCODONE HYDROCHLORIDE
     Dates: start: 20050722, end: 20080908
  9. NEXIUM [Suspect]
     Active Substance: ESOMEPRAZOLE MAGNESIUM
     Route: 048
  10. NEXIUM 24HR [Suspect]
     Active Substance: ESOMEPRAZOLE MAGNESIUM
     Route: 048
  11. PREVACID [Suspect]
     Active Substance: LANSOPRAZOLE
     Dosage: UNKNOWN
     Route: 048
  12. PREVACID [Suspect]
     Active Substance: LANSOPRAZOLE
     Route: 048
  13. PREVACID 24 HR [Suspect]
     Active Substance: LANSOPRAZOLE
     Route: 048
  14. PROTONIX [Suspect]
     Active Substance: PANTOPRAZOLE SODIUM
     Dosage: 1 DOSE UNKNOWN
     Route: 048
  15. NEXIUM [Suspect]
     Active Substance: ESOMEPRAZOLE MAGNESIUM
     Dosage: GENERIC
     Route: 065
  16. PRILOSEC [Suspect]
     Active Substance: OMEPRAZOLE MAGNESIUM
     Route: 048
  17. PROTONIX [Suspect]
     Active Substance: PANTOPRAZOLE SODIUM
     Dosage: UNK
     Route: 048
  18. DIAZEPAM. [Concomitant]
     Active Substance: DIAZEPAM
     Dates: start: 200305, end: 201307
  19. PREVACID [Suspect]
     Active Substance: LANSOPRAZOLE
     Dosage: 30.0MG UNKNOWN
     Route: 048
     Dates: start: 20060630
  20. BENTYL [Concomitant]
     Active Substance: DICYCLOMINE HYDROCHLORIDE
     Dates: start: 20050722, end: 20080115

REACTIONS (1)
  - Chronic kidney disease [Not Recovered/Not Resolved]

NARRATIVE: CASE EVENT DATE: 2016
